FAERS Safety Report 6741778-1 (Version None)
Quarter: 2010Q2

REPORT INFORMATION
  Report Type: 
  Country: None (occurrence: None)
  Receive Date: 20100526
  Receipt Date: 20100517
  Transmission Date: 20101027
  Serious: Yes (Death)
  Sender: FDA-Public Use
  Company Number: US-ROCHE-696855

PATIENT
  Sex: Female

DRUGS (1)
  1. MYCOPHENOLATE MOFETIL [Suspect]
     Indication: WEGENER'S GRANULOMATOSIS
     Dosage: LAST DOSE OF MEDICATION TAKEN ON 14 MARCH 2010
     Route: 065
     Dates: start: 20091104, end: 20100314

REACTIONS (4)
  - DIABETES MELLITUS [None]
  - DISEASE PROGRESSION [None]
  - PNEUMONIA [None]
  - RENAL FAILURE ACUTE [None]
